FAERS Safety Report 5810616-3 (Version None)
Quarter: 2008Q3

REPORT INFORMATION
  Report Type: 
  Country: None (occurrence: None)
  Receive Date: 20080715
  Receipt Date: 20080711
  Transmission Date: 20090109
  Serious: Yes (Other)
  Sender: FDA-Public Use
  Company Number: GR-GENENTECH-264304

PATIENT
  Age: 30 Year
  Sex: Female

DRUGS (1)
  1. RAPTIVA [Suspect]
     Indication: PSORIASIS
     Dosage: UNK
     Route: 058
     Dates: start: 20080601

REACTIONS (2)
  - ARTHRALGIA [None]
  - SYSTEMIC LUPUS ERYTHEMATOSUS [None]
